FAERS Safety Report 9806036 (Version 1)
Quarter: 2014Q1

REPORT INFORMATION
  Report Type: Spontaneous
  Country: US (occurrence: None)
  Receive Date: 20140108
  Receipt Date: 20140108
  Transmission Date: 20141002
  Serious: Yes (Life-Threatening)
  Sender: FDA-Public Use
  Company Number: None

PATIENT
  Age: 61 Year
  Sex: Female
  Weight: 126.1 kg

DRUGS (10)
  1. BYETTA [Suspect]
     Indication: DIABETES MELLITUS
     Route: 058
  2. RANITIDINE [Concomitant]
  3. DEXILANT [Concomitant]
  4. NOVOLOG [Concomitant]
  5. BUPROPRION [Concomitant]
  6. METFORMIN [Concomitant]
  7. SIMVASTATIN [Concomitant]
  8. LISINOPRIL [Concomitant]
  9. LANTUS [Concomitant]
  10. HCTZ [Concomitant]

REACTIONS (1)
  - Pancreatic carcinoma [None]
